FAERS Safety Report 14412342 (Version 1)
Quarter: 2018Q1

REPORT INFORMATION
  Report Type: Spontaneous
  Country: US (occurrence: US)
  Receive Date: 20180118
  Receipt Date: 20180118
  Transmission Date: 20180509
  Serious: Yes (Life-Threatening, Disabling)
  Sender: FDA-Public Use
  Company Number: None

PATIENT
  Age: 58 Year
  Sex: Female
  Weight: 54 kg

DRUGS (6)
  1. TURMERIC [Concomitant]
     Active Substance: HERBALS\TURMERIC
  2. MAGNEVIST [Suspect]
     Active Substance: GADOPENTETATE DIMEGLUMINE
     Indication: SCAN WITH CONTRAST
     Dosage: ?          OTHER FREQUENCY:3 MRI;OTHER ROUTE:INTO MY HIP JOINT MIXXED WITH CONTRAST D?
  3. MAGNEVIST [Suspect]
     Active Substance: GADOPENTETATE DIMEGLUMINE
     Indication: NUCLEAR MAGNETIC RESONANCE IMAGING
     Dosage: ?          OTHER FREQUENCY:3 MRI;OTHER ROUTE:INTO MY HIP JOINT MIXXED WITH CONTRAST D?
  4. TRAMADOL. [Concomitant]
     Active Substance: TRAMADOL
  5. SPIRONOLACTONE. [Concomitant]
     Active Substance: SPIRONOLACTONE
  6. VITAMIN D [Concomitant]
     Active Substance: CHOLECALCIFEROL

REACTIONS (9)
  - Small fibre neuropathy [None]
  - Insomnia [None]
  - Tinnitus [None]
  - Blood pressure fluctuation [None]
  - Scar [None]
  - Fibrosis [None]
  - Burning sensation [None]
  - Headache [None]
  - Tremor [None]
